FAERS Safety Report 5884074-7 (Version None)
Quarter: 2008Q3

REPORT INFORMATION
  Report Type: 
  Country: None (occurrence: None)
  Receive Date: 20080915
  Receipt Date: 20080908
  Transmission Date: 20090109
  Serious: Yes (Other)
  Sender: FDA-Public Use
  Company Number: US-ASTRAZENECA-2008UW18479

PATIENT
  Age: 68 Year
  Sex: Female
  Weight: 77.1 kg

DRUGS (5)
  1. SEROQUEL [Suspect]
     Indication: SLEEP DISORDER
     Route: 048
     Dates: start: 20040101
  2. PLAVIX [Concomitant]
  3. ACIPHEX [Concomitant]
  4. LISINOPRIL [Concomitant]
  5. LEXAPRO [Concomitant]

REACTIONS (12)
  - CARDIAC DISORDER [None]
  - DRUG WITHDRAWAL SYNDROME [None]
  - DYSPHAGIA [None]
  - GASTROINTESTINAL ULCER [None]
  - HEADACHE [None]
  - HIATUS HERNIA [None]
  - INSOMNIA [None]
  - OESOPHAGEAL DISORDER [None]
  - PNEUMONIA [None]
  - TACHYCARDIA [None]
  - VISION BLURRED [None]
  - WEIGHT INCREASED [None]
